FAERS Safety Report 20857885 (Version 1)
Quarter: 2022Q2

REPORT INFORMATION
  Report Type: Report from Study
  Country: US (occurrence: US)
  Receive Date: 20220521
  Receipt Date: 20220521
  Transmission Date: 20220721
  Serious: Yes (Other)
  Sender: FDA-Public Use
  Company Number: US-ABBVIE-22K-163-4400855-00

PATIENT
  Age: 42 Year
  Sex: Female

DRUGS (2)
  1. HUMIRA [Suspect]
     Active Substance: ADALIMUMAB
     Indication: Product used for unknown indication
     Route: 058
  2. JANSSEN COVID-19 VACCINE [Concomitant]
     Active Substance: AD26.COV2.S
     Indication: COVID-19 immunisation
     Dosage: 1ST DOSE
     Route: 030
     Dates: start: 20210515, end: 20210515

REACTIONS (4)
  - Carpal tunnel syndrome [Recovered/Resolved]
  - Haemoptysis [Recovering/Resolving]
  - Weight increased [Not Recovered/Not Resolved]
  - Rheumatoid lung [Unknown]

NARRATIVE: CASE EVENT DATE: 20211101
